FAERS Safety Report 4370282-3 (Version None)
Quarter: 2004Q2

REPORT INFORMATION
  Report Type: 
  Country: None (occurrence: None)
  Receive Date: 20040603
  Receipt Date: 20040405
  Transmission Date: 20050107
  Serious: No
  Sender: FDA-Public Use
  Company Number: US-BRISTOL-MYERS SQUIBB COMPANY-12551479

PATIENT
  Age: 9 Year
  Sex: Male
  Weight: 33 kg

DRUGS (2)
  1. ABILIFY [Suspect]
     Indication: SCHIZOPHRENIA
     Dosage: PRESCRIBED 5MG, 1 TABLET, P.O., TWICE DAILY
     Route: 048
  2. ABILIFY [Suspect]
     Indication: BIPOLAR DISORDER
     Dosage: PRESCRIBED 5MG, 1 TABLET, P.O., TWICE DAILY
     Route: 048

REACTIONS (5)
  - ABNORMAL BEHAVIOUR [None]
  - ACCIDENTAL OVERDOSE [None]
  - CONFUSIONAL STATE [None]
  - MEDICATION ERROR [None]
  - SOMNOLENCE [None]
